FAERS Safety Report 15254176 (Version 2)
Quarter: 2018Q3

REPORT INFORMATION
  Report Type: Spontaneous
  Country: US (occurrence: US)
  Receive Date: 20180808
  Receipt Date: 20180910
  Transmission Date: 20181010
  Serious: Yes (Hospitalization, Other)
  Sender: FDA-Public Use
  Company Number: US-AUROBINDO-AUR-APL-2018-040477

PATIENT
  Age: 59 Year
  Sex: Female

DRUGS (2)
  1. LOPERAMIDE 2MG [Suspect]
     Active Substance: LOPERAMIDE
     Indication: IRRITABLE BOWEL SYNDROME
     Dosage: 2 MILLIGRAM, 5 TABLETS
     Route: 048
  2. LOPERAMIDE 2MG [Suspect]
     Active Substance: LOPERAMIDE
     Indication: DIARRHOEA
     Dosage: SUPRATHERAPEUTIC DOSES (15 TABLETS)
     Route: 048

REACTIONS (6)
  - Intentional product misuse [Unknown]
  - Withdrawal syndrome [Unknown]
  - Electrocardiogram QT prolonged [Recovered/Resolved]
  - Blood pressure increased [Unknown]
  - Malaise [Unknown]
  - Hyperhidrosis [Unknown]
